FAERS Safety Report 7753958-7 (Version None)
Quarter: 2011Q3

REPORT INFORMATION
  Report Type: 
  Country: None (occurrence: None)
  Receive Date: 20110915
  Receipt Date: 20110907
  Transmission Date: 20111222
  Serious: Yes (Hospitalization)
  Sender: FDA-Public Use
  Company Number: FR-BRISTOL-MYERS SQUIBB COMPANY-16041923

PATIENT
  Age: 75 Year
  Sex: Female

DRUGS (17)
  1. TENORMIN [Concomitant]
     Dosage: 1TABLET IN MRNG AND EVENING
     Dates: start: 20040901
  2. ALLOPURINOL [Concomitant]
     Dosage: 1 TABLET AT NOON
     Dates: start: 20050101
  3. DIMETANE [Concomitant]
     Dosage: SOLUTION 3TABLESPPONS DAILY
     Route: 048
  4. DIOSMIN + HESPERIDIN [Suspect]
     Dosage: 1 TABLET MRNG
  5. PRAZEPAM [Concomitant]
     Dosage: 1 TABLET IN MRNG AND EVNG
     Dates: start: 20080101
  6. IRBESARTAN + HYDROCHLOROTHIAZIDE [Suspect]
     Dosage: 1 TABLET IN EVNG
     Dates: start: 19980101
  7. LESCOL [Suspect]
     Dosage: SUSTAINED RELEASE
     Dates: start: 20070801
  8. FERROUS SULFATE TAB [Suspect]
     Dates: start: 20080101
  9. ASPIRIN [Concomitant]
     Dosage: DAILY 1 DOSE`
     Dates: start: 20000101
  10. DICLOFENAC SODIUM [Concomitant]
     Dosage: 1DF IS 1 TABLET
     Dates: start: 20040101
  11. LOPERAMIDE [Concomitant]
  12. ANAFRANIL [Concomitant]
     Dosage: HALF TABLET IN THE NOON,EVNG
     Dates: start: 20050101
  13. NEXIUM [Concomitant]
     Dosage: 1 TABLET EVNG
     Dates: start: 20060801
  14. SODIUM CROMOGLICATE [Concomitant]
     Dosage: CROMABAK EYEWASH 2%
  15. VOLTAREN [Concomitant]
     Dates: start: 20070101
  16. ACETAMINOPHEN [Concomitant]
     Dosage: TABLET SHOULD BE TAKEN ON MRNG,NOON,EVENING
  17. VENTOLIN [Concomitant]
     Dosage: SUSPENSION
     Route: 055

REACTIONS (1)
  - COLITIS MICROSCOPIC [None]
